FAERS Safety Report 9734623 (Version 1)
Quarter: 2013Q4

REPORT INFORMATION
  Report Type: Report from Study
  Country: GB (occurrence: GB)
  Receive Date: 20131206
  Receipt Date: 20131206
  Transmission Date: 20140711
  Serious: Yes (Hospitalization)
  Sender: FDA-Public Use
  Company Number: GB-ROCHE-1310799

PATIENT
  Sex: Male
  Weight: 67 kg

DRUGS (2)
  1. RITUXIMAB [Suspect]
     Indication: RHEUMATOID ARTHRITIS
     Dosage: LAST DOSE PRIOR TO SAE ON 22/JAN/2013
     Route: 065
     Dates: start: 20081128
  2. SULFASALAZINE [Concomitant]

REACTIONS (2)
  - Aortic stenosis [Unknown]
  - Coronary artery disease [Unknown]
